FAERS Safety Report 8472568-X (Version None)
Quarter: 2012Q2

REPORT INFORMATION
  Report Type: 
  Country: None (occurrence: None)
  Receive Date: 20120627
  Receipt Date: 20120221
  Transmission Date: 20120825
  Serious: No
  Sender: FDA-Public Use
  Company Number: US-AMGEN-USASP2011068508

PATIENT
  Age: 70 Year
  Sex: Female
  Weight: 68 kg

DRUGS (2)
  1. LEVOTHYROXINE [Concomitant]
     Indication: HYPOTHYROIDISM
     Dosage: 100 MUG, QD
     Route: 048
  2. PROCRIT [Suspect]
     Indication: MYELOFIBROSIS
     Dosage: 60000 IU, QWK
     Route: 058
     Dates: start: 20040101

REACTIONS (4)
  - MALAISE [None]
  - LABORATORY TEST [None]
  - FATIGUE [None]
  - ANTIBODY TEST POSITIVE [None]
